FAERS Safety Report 24412441 (Version 2)
Quarter: 2025Q3

REPORT INFORMATION
  Report Type: Spontaneous
  Country: CN (occurrence: CN)
  Receive Date: 20241008
  Receipt Date: 20250810
  Transmission Date: 20251020
  Serious: Yes (Death, Other)
  Sender: ALEXION PHARMACEUTICALS
  Company Number: CN-ASTRAZENECA-202410CHN001514CN

PATIENT
  Age: 49 Year
  Sex: Female

DRUGS (1)
  1. IRESSA [Suspect]
     Active Substance: GEFITINIB
     Indication: Non-small cell lung cancer stage IV
     Dosage: 250 MILLIGRAM, QD

REACTIONS (4)
  - Malignant neoplasm progression [Fatal]
  - Metastases to central nervous system [Fatal]
  - Acquired gene mutation [Fatal]
  - Thrombophlebitis migrans [Fatal]
